FAERS Safety Report 9343340 (Version 1)
Quarter: 2013Q2

REPORT INFORMATION
  Report Type: Spontaneous
  Country: FR (occurrence: FR)
  Receive Date: 20130612
  Receipt Date: 20130612
  Transmission Date: 20140414
  Serious: Yes (Disabling)
  Sender: FDA-Public Use
  Company Number: FR-ROCHE-1222066

PATIENT
  Age: 54 Year
  Sex: Male

DRUGS (11)
  1. ZELBORAF [Suspect]
     Indication: MALIGNANT MELANOMA
     Route: 048
     Dates: start: 201212
  2. ZELBORAF [Suspect]
     Route: 065
     Dates: start: 201212
  3. KEPPRA [Concomitant]
     Dosage: FREQUENCY : 0.5 IN 2 DAYS
     Route: 065
     Dates: start: 20130220, end: 20130327
  4. AMLOR [Concomitant]
     Route: 065
     Dates: start: 20130220
  5. CORTANCYL [Concomitant]
     Dosage: 10-20 MG DAILY
     Route: 048
     Dates: start: 20130102
  6. DIFFERINE [Concomitant]
     Route: 003
     Dates: start: 20130220, end: 20130327
  7. FUCIDINE (FRANCE) [Concomitant]
     Route: 065
  8. BISEPTINE [Concomitant]
     Route: 065
  9. ECLARAN [Concomitant]
  10. DOXYCYCLINE [Concomitant]
     Route: 065
     Dates: end: 20130417
  11. SORIATANE [Concomitant]
     Route: 065
     Dates: start: 20130417

REACTIONS (3)
  - Acne [Unknown]
  - Skin papilloma [Unknown]
  - Pain [Recovering/Resolving]
